FAERS Safety Report 9353824 (Version 3)
Quarter: 2013Q2

REPORT INFORMATION
  Report Type: Report from Study
  Country: US (occurrence: US)
  Receive Date: 20130618
  Receipt Date: 20130628
  Transmission Date: 20140414
  Serious: Yes (Other)
  Sender: FDA-Public Use
  Company Number: US-BAXTER-2013BAX022402

PATIENT
  Sex: Male
  Weight: 68.18 kg

DRUGS (2)
  1. FEIBA NF [Suspect]
     Indication: HAEMOPHILIA
     Route: 042
     Dates: start: 1999
  2. FEIBA NF [Suspect]
     Indication: FACTOR IX INHIBITION

REACTIONS (5)
  - Haemarthrosis [Not Recovered/Not Resolved]
  - Haemarthrosis [Not Recovered/Not Resolved]
  - Drug ineffective [Unknown]
  - Arthropathy [Not Recovered/Not Resolved]
  - Arthropathy [Not Recovered/Not Resolved]
